FAERS Safety Report 10045960 (Version 1)
Quarter: 2014Q1

REPORT INFORMATION
  Report Type: Spontaneous
  Country: IT (occurrence: IT)
  Receive Date: 20140330
  Receipt Date: 20140330
  Transmission Date: 20141002
  Serious: Yes (Other)
  Sender: FDA-Public Use
  Company Number: IT-TEVA-469901ISR

PATIENT
  Age: 63 Year
  Sex: Female

DRUGS (3)
  1. AMOXICILLINA E ACIDO CLAVULANICO [Suspect]
     Indication: LARYNGITIS
     Dosage: 1 DOSAGE FORMS DAILY;
     Route: 048
     Dates: start: 20140312, end: 20140312
  2. LANSOPRAZOLO [Concomitant]
     Dosage: 30 MILLIGRAM DAILY;
     Route: 048
  3. MICARDIS 20 MG [Concomitant]
     Dosage: 1 DOSAGE FORMS DAILY;
     Route: 048

REACTIONS (3)
  - Dyspnoea [Recovered/Resolved]
  - Erythema [Recovered/Resolved]
  - Pruritus [Recovered/Resolved]
